FAERS Safety Report 5277592-6 (Version None)
Quarter: 2007Q1

REPORT INFORMATION
  Report Type: 
  Country: None (occurrence: None)
  Receive Date: 20070327
  Receipt Date: 20070312
  Transmission Date: 20070707
  Serious: Yes (Hospitalization, Other)
  Sender: FDA-Public Use
  Company Number: US-SHR-US-2007-005888

PATIENT
  Age: 53 Year
  Sex: Female
  Weight: 72.6 kg

DRUGS (4)
  1. BETASERON [Suspect]
     Indication: RELAPSING-REMITTING MULTIPLE SCLEROSIS
     Dosage: 8 MIU, EVERY 2D
     Route: 058
     Dates: start: 20040510, end: 20061222
  2. BETASERON [Suspect]
     Dosage: 4 MIU, EVERY 2D
     Route: 058
     Dates: start: 20070221, end: 20070305
  3. ZANAFLEX [Concomitant]
     Dosage: .2 MG, 4X/DAY
     Dates: start: 20030101
  4. KLONOPIN [Concomitant]
     Dosage: .25 MG, 3X/DAY
     Dates: start: 20030101

REACTIONS (4)
  - CYST [None]
  - GRANULOMA [None]
  - PNEUMONIA [None]
  - UTERINE PROLAPSE [None]
